FAERS Safety Report 19399435 (Version 1)
Quarter: 2021Q2

REPORT INFORMATION
  Report Type: Spontaneous
  Country: US (occurrence: US)
  Receive Date: 20210610
  Receipt Date: 20210610
  Transmission Date: 20210717
  Serious: No
  Sender: FDA-Public Use
  Company Number: None

PATIENT
  Age: 39 Year
  Sex: Male
  Weight: 99 kg

DRUGS (1)
  1. LEVOFLOXACIN 500 MG [Suspect]
     Active Substance: LEVOFLOXACIN

REACTIONS (4)
  - Tendon pain [None]
  - Back pain [None]
  - Myalgia [None]
  - Feeling abnormal [None]

NARRATIVE: CASE EVENT DATE: 20210531
